FAERS Safety Report 24990510 (Version 3)
Quarter: 2025Q1

REPORT INFORMATION
  Report Type: Spontaneous
  Country: CN (occurrence: CN)
  Receive Date: 20250220
  Receipt Date: 20250227
  Transmission Date: 20250409
  Serious: Yes (Hospitalization, Other)
  Sender: PFIZER
  Company Number: CN-PFIZER INC-PV202500018713

PATIENT
  Age: 28 Year
  Sex: Female
  Weight: 60 kg

DRUGS (3)
  1. METHOTREXATE SODIUM [Suspect]
     Active Substance: METHOTREXATE SODIUM
     Indication: Ectopic pregnancy termination
     Dosage: 50 MG, ALTERNATE DAY
     Route: 030
     Dates: start: 20250117, end: 20250124
  2. LEUCOVORIN CALCIUM [Suspect]
     Active Substance: LEUCOVORIN CALCIUM
     Indication: Detoxification
     Dosage: 5 MG, ALTERNATE DAY
     Dates: start: 20250117
  3. MIFEPRISTONE [Suspect]
     Active Substance: MIFEPRISTONE
     Indication: Ectopic pregnancy termination
     Route: 048
     Dates: start: 20250117

REACTIONS (2)
  - Liver injury [Recovered/Resolved]
  - Off label use [Unknown]

NARRATIVE: CASE EVENT DATE: 20250117
